FAERS Safety Report 13180463 (Version 6)
Quarter: 2018Q1

REPORT INFORMATION
  Report Type: Spontaneous
  Country: US (occurrence: US)
  Receive Date: 20170202
  Receipt Date: 20180309
  Transmission Date: 20180508
  Serious: Yes (Other)
  Sender: FDA-Public Use
  Company Number: US-JNJFOC-20170127166

PATIENT
  Age: 31 Year
  Sex: Female

DRUGS (2)
  1. XARELTO [Suspect]
     Active Substance: RIVAROXABAN
     Indication: PULMONARY EMBOLISM
     Route: 048
     Dates: start: 20150531, end: 201509
  2. SKYLA [Suspect]
     Active Substance: LEVONORGESTREL
     Indication: CONTRACEPTION
     Dosage: 14 MCG/24 HR CONT
     Route: 015

REACTIONS (4)
  - Treatment failure [Unknown]
  - Pulmonary embolism [Recovered/Resolved]
  - Underdose [Unknown]
  - Arthralgia [Unknown]

NARRATIVE: CASE EVENT DATE: 20150531
